FAERS Safety Report 5002056-4 (Version None)
Quarter: 2006Q2

REPORT INFORMATION
  Report Type: 
  Country: None (occurrence: None)
  Receive Date: 20060515
  Receipt Date: 20060210
  Transmission Date: 20061013
  Serious: Yes (Hospitalization, Other)
  Sender: FDA-Public Use
  Company Number: US-MERCK-0602USA04167

PATIENT
  Age: 51 Year
  Sex: Female
  Weight: 114 kg

DRUGS (2)
  1. VIOXX [Suspect]
     Indication: ARTHRITIS
     Route: 048
     Dates: start: 20010701, end: 20040101
  2. VIOXX [Suspect]
     Route: 048
     Dates: start: 20010701, end: 20040101

REACTIONS (9)
  - CARDIAC FAILURE CONGESTIVE [None]
  - CEREBROVASCULAR ACCIDENT [None]
  - CHEST PAIN [None]
  - DIVERTICULUM [None]
  - DYSARTHRIA [None]
  - DYSPHAGIA [None]
  - HAEMORRHAGE [None]
  - MYOCARDIAL INFARCTION [None]
  - VOMITING [None]
